FAERS Safety Report 13181601 (Version 6)
Quarter: 2018Q2

REPORT INFORMATION
  Report Type: Other
  Country: US (occurrence: US)
  Receive Date: 20170202
  Receipt Date: 20180626
  Transmission Date: 20180711
  Serious: Yes (Hospitalization, Other)
  Sender: FDA-Public Use
  Company Number: US-ACORDA-ACO_133227_2017

PATIENT
  Sex: Female
  Weight: 58.05 kg

DRUGS (6)
  1. AMPYRA [Suspect]
     Active Substance: DALFAMPRIDINE
     Indication: GAIT DISTURBANCE
     Dosage: 10 MG, BID
     Route: 048
  2. TAGRISSO [Suspect]
     Active Substance: OSIMERTINIB
     Indication: PRODUCT USED FOR UNKNOWN INDICATION
     Dosage: 40 MG, UNK
     Route: 065
  3. AMPYRA [Suspect]
     Active Substance: DALFAMPRIDINE
     Indication: MULTIPLE SCLEROSIS
     Dosage: 10 MG, BID
     Route: 048
  4. TAGRISSO [Suspect]
     Active Substance: OSIMERTINIB
     Dosage: 40 MG, BID
     Route: 065
  5. GABAPENTIN. [Suspect]
     Active Substance: GABAPENTIN
     Indication: PRODUCT USED FOR UNKNOWN INDICATION
     Dosage: UNK
     Route: 065
  6. COPAXONE [Concomitant]
     Active Substance: GLATIRAMER ACETATE
     Indication: PRODUCT USED FOR UNKNOWN INDICATION
     Dosage: 40 MG/ML, PFS UNK
     Route: 065

REACTIONS (7)
  - Non-small cell lung cancer stage I [Recovered/Resolved]
  - Stomatitis [Unknown]
  - Alopecia [Unknown]
  - Nausea [Unknown]
  - Nail disorder [Unknown]
  - Diarrhoea [Unknown]
  - Fatigue [Unknown]
